FAERS Safety Report 18953475 (Version 1)
Quarter: 2021Q1

REPORT INFORMATION
  Report Type: Spontaneous
  Country: US (occurrence: US)
  Receive Date: 20210301
  Receipt Date: 20210301
  Transmission Date: 20210420
  Serious: Yes (Other)
  Sender: FDA-Public Use
  Company Number: None

PATIENT
  Age: 49 Year

DRUGS (21)
  1. DICLOFENAC [Concomitant]
     Active Substance: DICLOFENAC
  2. DULOXETINE. [Concomitant]
     Active Substance: DULOXETINE
  3. SINGULAIR [Concomitant]
     Active Substance: MONTELUKAST SODIUM
  4. NITRO [Concomitant]
     Active Substance: NITROGLYCERIN
  5. HUMIRA [Suspect]
     Active Substance: ADALIMUMAB
     Indication: PSORIATIC ARTHROPATHY
     Dosage: ?          OTHER FREQUENCY:EVERY 2 WEEKS;?
     Route: 058
     Dates: start: 20190301
  6. LEXAPRO [Concomitant]
     Active Substance: ESCITALOPRAM OXALATE
  7. ASPIRIN. [Concomitant]
     Active Substance: ASPIRIN
  8. LIPITOR [Concomitant]
     Active Substance: ATORVASTATIN CALCIUM
  9. BACLOFEN. [Concomitant]
     Active Substance: BACLOFEN
  10. CHEW ASA [Concomitant]
  11. BRILINTA [Concomitant]
     Active Substance: TICAGRELOR
  12. BUPROPION SR ? XL [Concomitant]
  13. B12 INJ [Concomitant]
  14. JARDIANCE [Concomitant]
     Active Substance: EMPAGLIFLOZIN
  15. DEXILANT [Concomitant]
     Active Substance: DEXLANSOPRAZOLE
  16. FENOFIBRATE. [Concomitant]
     Active Substance: FENOFIBRATE
  17. GABA [Concomitant]
     Active Substance: HOMEOPATHICS
  18. TADALAF [Concomitant]
  19. METFORMIN [Concomitant]
     Active Substance: METFORMIN HYDROCHLORIDE
  20. TOPROL XL [Concomitant]
     Active Substance: METOPROLOL SUCCINATE
  21. LISINOPRIL. [Concomitant]
     Active Substance: LISINOPRIL

REACTIONS (1)
  - Myocardial infarction [None]

NARRATIVE: CASE EVENT DATE: 20210123
